FAERS Safety Report 9118285 (Version 1)
Quarter: 2013Q1

REPORT INFORMATION
  Report Type: Spontaneous
  Country: US (occurrence: None)
  Receive Date: 20130221
  Receipt Date: 20130221
  Transmission Date: 20140127
  Serious: Yes (Life-Threatening, Hospitalization, Disabling, Other)
  Sender: FDA-Public Use
  Company Number: None

PATIENT
  Sex: Female
  Weight: 63.5 kg

DRUGS (3)
  1. NAPROXEN [Suspect]
     Indication: INFECTION
     Dosage: I TOOK ONE WHEN GOT HOME FROM ER - I TOOK ANOTHER 6 HRS LATER THEN STARTED VOMITING FOR 2 1/2 DAYS AND ALMOST DIED! THERE ARE 18 LEFT IN PILL BOTTLE
     Dates: start: 20130122
  2. NAPROXEN [Suspect]
     Indication: PAIN
     Dosage: I TOOK ONE WHEN GOT HOME FROM ER - I TOOK ANOTHER 6 HRS LATER THEN STARTED VOMITING FOR 2 1/2 DAYS AND ALMOST DIED! THERE ARE 18 LEFT IN PILL BOTTLE
     Dates: start: 20130122
  3. NAPROXEN [Suspect]
     Dosage: I TOOK ONE WHEN GOT HOME FROM ER - I TOOK ANOTHER 6 HRS LATER THEN STARTED VOMITING FOR 2 1/2 DAYS AND ALMOST DIED! THERE ARE 18 LEFT IN PILL BOTTLE
     Dates: start: 20130122

REACTIONS (3)
  - Vomiting [None]
  - Oral discomfort [None]
  - Gastric disorder [None]
